FAERS Safety Report 4407704-5 (Version None)
Quarter: 2004Q3

REPORT INFORMATION
  Report Type: 
  Country: None (occurrence: None)
  Receive Date: 20040721
  Receipt Date: 20040709
  Transmission Date: 20050211
  Serious: No
  Sender: FDA-Public Use
  Company Number: 04P-013-0259831-00

PATIENT
  Sex: Female

DRUGS (1)
  1. MERIDIA [Suspect]
     Indication: OVERWEIGHT
     Dosage: 10 MG, 1 IN 1 D, PER ORAL; SECOND WEEK OF PREGNANCY-FIFTH WEEK OF PREGNANCY
     Route: 048

REACTIONS (3)
  - ABORTION INDUCED [None]
  - DRUG EXPOSURE DURING PREGNANCY [None]
  - UNWANTED PREGNANCY [None]
